FAERS Safety Report 5958149-8 (Version None)
Quarter: 2008Q4

REPORT INFORMATION
  Report Type: 
  Country: None (occurrence: None)
  Receive Date: 20081117
  Receipt Date: 20081117
  Transmission Date: 20090506
  Serious: Yes (Hospitalization)
  Sender: FDA-Public Use
  Company Number: None

PATIENT
  Sex: Female
  Weight: 43 kg

DRUGS (3)
  1. ALPRAZOLAM [Suspect]
     Indication: ANXIETY
     Dosage: 0.25 MG 2 DOSES PO
     Route: 048
     Dates: start: 20080926, end: 20081102
  2. LORAZEPAM [Suspect]
     Indication: ANXIETY
     Dosage: 1MG 1 DOSE IV
     Route: 042
     Dates: start: 20080902, end: 20081102
  3. LORAZEPAM [Suspect]
     Indication: SEDATION
     Dosage: 1MG 1 DOSE IV
     Route: 042
     Dates: start: 20080902, end: 20081102

REACTIONS (2)
  - HYPOTENSION [None]
  - UNRESPONSIVE TO STIMULI [None]
